FAERS Safety Report 8267875-X (Version None)
Quarter: 2012Q2

REPORT INFORMATION
  Report Type: 
  Country: None (occurrence: None)
  Receive Date: 20120409
  Receipt Date: 20120329
  Transmission Date: 20120825
  Serious: Yes (Hospitalization)
  Sender: FDA-Public Use
  Company Number: US-CELGENEUS-087-21660-12040107

PATIENT
  Sex: Female
  Weight: 52 kg

DRUGS (6)
  1. AMLODIPINE [Concomitant]
     Indication: HYPERTENSION
     Dosage: 2.5 MILLIGRAM
     Route: 048
  2. ABRAXANE [Suspect]
     Dosage: 238 MILLIGRAM
     Route: 065
     Dates: start: 20120301, end: 20120315
  3. DOCETAXEL [Suspect]
     Route: 065
  4. URSO 250 [Concomitant]
     Indication: JAUNDICE
     Dosage: 300 MILLIGRAM
     Route: 048
     Dates: start: 20111201
  5. ABRAXANE [Suspect]
     Indication: BREAST CANCER METASTATIC
     Dosage: 238 MILLIGRAM
     Route: 065
     Dates: start: 20111222
  6. SIMVASTATIN [Concomitant]
     Indication: HYPERLIPIDAEMIA
     Dosage: 5 MILLIGRAM
     Route: 048
     Dates: end: 20120313

REACTIONS (2)
  - DYSPNOEA EXERTIONAL [None]
  - DECREASED APPETITE [None]
